FAERS Safety Report 8953351 (Version 1)
Quarter: 2012Q4

REPORT INFORMATION
  Report Type: 
  Country: US (occurrence: US)
  Receive Date: 20121206
  Receipt Date: 20121206
  Transmission Date: 20130627
  Serious: No
  Sender: FDA-Public Use
  Company Number: US-PFIZER INC-2012300635

PATIENT
  Age: 37 Year
  Sex: Male
  Weight: 127 kg

DRUGS (10)
  1. GEODON [Suspect]
     Indication: SCHIZOPHRENIA
     Dosage: 80 mg, 2x/day
  2. GEODON [Suspect]
     Indication: BIPOLAR DISORDER
     Dosage: UNK, 2x/day
  3. TRAZODONE HCL [Suspect]
     Indication: PSYCHOTHERAPY
     Dosage: 100 mg, 2x/day
  4. TRAZODONE HCL [Suspect]
     Dosage: UNK, 2x/day
  5. PROZAC [Suspect]
     Indication: BIPOLAR DISORDER
     Dosage: 30 mg, 2x/day
  6. PROZAC [Suspect]
     Dosage: UNK, 2x/day
  7. RISPERDAL [Suspect]
     Indication: ANTIPSYCHOTIC DRUG LEVEL
     Dosage: UNK, 2x/day
     Dates: start: 20120711
  8. SYNTHROID [Concomitant]
     Indication: THYROID DISORDER
     Dosage: UNK, daily
  9. LANTUS [Concomitant]
     Dosage: UNK, 3x/day
  10. NOVOLOG [Concomitant]
     Dosage: UNK, 3x/day

REACTIONS (2)
  - Toothache [Unknown]
  - Vomiting [Unknown]
